FAERS Safety Report 9772377 (Version 1)
Quarter: 2013Q4

REPORT INFORMATION
  Report Type: Spontaneous
  Country: US (occurrence: US)
  Receive Date: 20131219
  Receipt Date: 20131219
  Transmission Date: 20140711
  Serious: Yes (Hospitalization)
  Sender: FDA-Public Use
  Company Number: US-CELGENEUS-163-POMAL-13121712

PATIENT
  Sex: Male

DRUGS (1)
  1. POMALYST [Suspect]
     Indication: PLASMA CELL MYELOMA
     Dosage: 3 MILLIGRAM
     Route: 048
     Dates: start: 20131112, end: 20131125

REACTIONS (3)
  - Fluid overload [Not Recovered/Not Resolved]
  - Pancytopenia [Not Recovered/Not Resolved]
  - Immunodeficiency [Not Recovered/Not Resolved]
